FAERS Safety Report 8276140-6 (Version None)
Quarter: 2012Q2

REPORT INFORMATION
  Report Type: 
  Country: None (occurrence: None)
  Receive Date: 20120412
  Receipt Date: 20120403
  Transmission Date: 20120825
  Serious: Yes (Hospitalization)
  Sender: FDA-Public Use
  Company Number: IE-B.I. PHARMACEUTICALS,INC./RIDGEFIELD-2012-EU-01942GD

PATIENT
  Age: 74 Year
  Sex: Male

DRUGS (6)
  1. DIAZEPAM [Concomitant]
  2. PROPRANOLOL [Concomitant]
  3. LANSOPRAZOLE [Concomitant]
  4. TELMISARTAN/HYDROCHLOROTHIAZIDE [Suspect]
  5. VENLAFAXINE [Suspect]
  6. ZOLPIDEM TARTRATE [Concomitant]

REACTIONS (10)
  - HYPONATRAEMIA [None]
  - INAPPROPRIATE ANTIDIURETIC HORMONE SECRETION [None]
  - RESPIRATORY ALKALOSIS [None]
  - CONFUSIONAL STATE [None]
  - NERVOUS SYSTEM DISORDER [None]
  - VIITH NERVE PARALYSIS [None]
  - GAIT DISTURBANCE [None]
  - SOMNOLENCE [None]
  - MOVEMENT DISORDER [None]
  - DYSARTHRIA [None]
